FAERS Safety Report 25757637 (Version 1)
Quarter: 2025Q3

REPORT INFORMATION
  Report Type: Spontaneous
  Country: US (occurrence: US)
  Receive Date: 20250903
  Receipt Date: 20250903
  Transmission Date: 20251021
  Serious: Yes (Life-Threatening, Hospitalization)
  Sender: MYLAN
  Company Number: US-MYLANLABS-2025M1074444

PATIENT
  Age: 24 Year
  Sex: Female

DRUGS (40)
  1. ADENOSINE [Suspect]
     Active Substance: ADENOSINE
     Indication: Supraventricular tachycardia
  2. ADENOSINE [Suspect]
     Active Substance: ADENOSINE
  3. ADENOSINE [Suspect]
     Active Substance: ADENOSINE
     Route: 042
  4. ADENOSINE [Suspect]
     Active Substance: ADENOSINE
     Route: 042
  5. ADENOSINE [Suspect]
     Active Substance: ADENOSINE
  6. ADENOSINE [Suspect]
     Active Substance: ADENOSINE
  7. ADENOSINE [Suspect]
     Active Substance: ADENOSINE
     Route: 042
  8. ADENOSINE [Suspect]
     Active Substance: ADENOSINE
     Route: 042
  9. ADENOSINE [Suspect]
     Active Substance: ADENOSINE
  10. ADENOSINE [Suspect]
     Active Substance: ADENOSINE
     Route: 042
  11. ADENOSINE [Suspect]
     Active Substance: ADENOSINE
  12. ADENOSINE [Suspect]
     Active Substance: ADENOSINE
     Route: 042
  13. NOREPINEPHRINE [Suspect]
     Active Substance: NOREPINEPHRINE
     Indication: Cardiogenic shock
  14. NOREPINEPHRINE [Suspect]
     Active Substance: NOREPINEPHRINE
     Route: 065
  15. NOREPINEPHRINE [Suspect]
     Active Substance: NOREPINEPHRINE
     Route: 065
  16. NOREPINEPHRINE [Suspect]
     Active Substance: NOREPINEPHRINE
  17. PROCAINAMIDE HYDROCHLORIDE [Suspect]
     Active Substance: PROCAINAMIDE HYDROCHLORIDE
     Indication: Atrial tachycardia
  18. PROCAINAMIDE HYDROCHLORIDE [Suspect]
     Active Substance: PROCAINAMIDE HYDROCHLORIDE
     Route: 065
  19. PROCAINAMIDE HYDROCHLORIDE [Suspect]
     Active Substance: PROCAINAMIDE HYDROCHLORIDE
     Route: 065
  20. PROCAINAMIDE HYDROCHLORIDE [Suspect]
     Active Substance: PROCAINAMIDE HYDROCHLORIDE
  21. PROCAINAMIDE HYDROCHLORIDE [Suspect]
     Active Substance: PROCAINAMIDE HYDROCHLORIDE
     Indication: Atrial tachycardia
     Dosage: 30 MICROGRAM/KILOGRAM, QMINUTE, INFUSION
  22. PROCAINAMIDE HYDROCHLORIDE [Suspect]
     Active Substance: PROCAINAMIDE HYDROCHLORIDE
     Dosage: 30 MICROGRAM/KILOGRAM, QMINUTE, INFUSION
  23. PROCAINAMIDE HYDROCHLORIDE [Suspect]
     Active Substance: PROCAINAMIDE HYDROCHLORIDE
     Dosage: 30 MICROGRAM/KILOGRAM, QMINUTE, INFUSION
     Route: 065
  24. PROCAINAMIDE HYDROCHLORIDE [Suspect]
     Active Substance: PROCAINAMIDE HYDROCHLORIDE
     Dosage: 30 MICROGRAM/KILOGRAM, QMINUTE, INFUSION
     Route: 065
  25. PROCAINAMIDE HYDROCHLORIDE [Suspect]
     Active Substance: PROCAINAMIDE HYDROCHLORIDE
     Dosage: 50 MICROGRAM/KILOGRAM, QMINUTE, INFUSION
  26. PROCAINAMIDE HYDROCHLORIDE [Suspect]
     Active Substance: PROCAINAMIDE HYDROCHLORIDE
     Dosage: 50 MICROGRAM/KILOGRAM, QMINUTE, INFUSION
  27. PROCAINAMIDE HYDROCHLORIDE [Suspect]
     Active Substance: PROCAINAMIDE HYDROCHLORIDE
     Dosage: 50 MICROGRAM/KILOGRAM, QMINUTE, INFUSION
     Route: 065
  28. PROCAINAMIDE HYDROCHLORIDE [Suspect]
     Active Substance: PROCAINAMIDE HYDROCHLORIDE
     Dosage: 50 MICROGRAM/KILOGRAM, QMINUTE, INFUSION
     Route: 065
  29. NALBUPHINE HYDROCHLORIDE [Concomitant]
     Active Substance: NALBUPHINE HYDROCHLORIDE
     Indication: Abdominal pain
  30. NALBUPHINE HYDROCHLORIDE [Concomitant]
     Active Substance: NALBUPHINE HYDROCHLORIDE
     Route: 065
  31. NALBUPHINE HYDROCHLORIDE [Concomitant]
     Active Substance: NALBUPHINE HYDROCHLORIDE
     Route: 065
  32. NALBUPHINE HYDROCHLORIDE [Concomitant]
     Active Substance: NALBUPHINE HYDROCHLORIDE
  33. ATIVAN [Concomitant]
     Active Substance: LORAZEPAM
     Indication: Nausea
  34. ATIVAN [Concomitant]
     Active Substance: LORAZEPAM
     Route: 065
  35. ATIVAN [Concomitant]
     Active Substance: LORAZEPAM
     Route: 065
  36. ATIVAN [Concomitant]
     Active Substance: LORAZEPAM
  37. FLUMAZENIL [Concomitant]
     Active Substance: FLUMAZENIL
     Indication: Confusional state
  38. FLUMAZENIL [Concomitant]
     Active Substance: FLUMAZENIL
     Route: 065
  39. FLUMAZENIL [Concomitant]
     Active Substance: FLUMAZENIL
     Route: 065
  40. FLUMAZENIL [Concomitant]
     Active Substance: FLUMAZENIL

REACTIONS (1)
  - Drug ineffective [Unknown]
